FAERS Safety Report 21757910 (Version 1)
Quarter: 2022Q4

REPORT INFORMATION
  Report Type: Spontaneous
  Country: US (occurrence: None)
  Receive Date: 20221221
  Receipt Date: 20221221
  Transmission Date: 20230113
  Serious: Yes (Hospitalization)
  Sender: FDA-Public Use
  Company Number: US-ROCHE-3124672

PATIENT
  Age: 85 Year
  Sex: Female
  Weight: 72.1 kg

DRUGS (1)
  1. ACTIVASE [Suspect]
     Active Substance: ALTEPLASE
     Indication: Cerebrovascular accident
     Route: 042
     Dates: start: 20220226, end: 20220226

REACTIONS (1)
  - Petechiae [Recovered/Resolved]

NARRATIVE: CASE EVENT DATE: 20220227
